FAERS Safety Report 6169366-9 (Version None)
Quarter: 2009Q2

REPORT INFORMATION
  Report Type: 
  Country: None (occurrence: None)
  Receive Date: 20090424
  Receipt Date: 20090210
  Transmission Date: 20091009
  Serious: No
  Sender: FDA-Public Use
  Company Number: PYLE-2009-003

PATIENT

DRUGS (2)
  1. PYLERA [Suspect]
     Indication: HELICOBACTER INFECTION
  2. OMEPRAZOLE QD [Concomitant]

REACTIONS (1)
  - DRUG INEFFECTIVE [None]
